FAERS Safety Report 8118855-6 (Version None)
Quarter: 2012Q1

REPORT INFORMATION
  Report Type: 
  Country: None (occurrence: None)
  Receive Date: 20120207
  Receipt Date: 20120126
  Transmission Date: 20120608
  Serious: Yes (Hospitalization, Disabling, Other)
  Sender: FDA-Public Use
  Company Number: US-ELI_LILLY_AND_COMPANY-US201201008288

PATIENT
  Sex: Male

DRUGS (3)
  1. CIALIS [Suspect]
     Indication: ERECTILE DYSFUNCTION
     Dosage: 1 DF, UNK
     Dates: start: 20120106
  2. PERCOCET [Concomitant]
     Indication: ERECTILE DYSFUNCTION
     Dosage: 1 DF, UNK
     Dates: start: 20120106
  3. VIAGRA [Concomitant]
     Indication: ERECTILE DYSFUNCTION
     Dosage: 1 DF, UNK
     Dates: start: 20120106

REACTIONS (2)
  - AMPUTATION OF PENIS [None]
  - OVERDOSE [None]
